FAERS Safety Report 7152096-4 (Version None)
Quarter: 2010Q4

REPORT INFORMATION
  Report Type: 
  Country: None (occurrence: None)
  Receive Date: 20101213
  Receipt Date: 20101202
  Transmission Date: 20110411
  Serious: Yes (Hospitalization)
  Sender: FDA-Public Use
  Company Number: US-BIOGENIDEC-2010BI042295

PATIENT
  Age: 56 Year
  Sex: Female
  Weight: 77 kg

DRUGS (9)
  1. TYSABRI [Suspect]
     Indication: MULTIPLE SCLEROSIS
     Route: 042
     Dates: start: 20100827
  2. TYSABRI [Suspect]
     Route: 042
     Dates: start: 20071018, end: 20081223
  3. METFORMIN [Concomitant]
     Indication: DIABETES MELLITUS
     Route: 048
  4. GABAPENTIN [Concomitant]
     Indication: HYPOAESTHESIA
     Route: 048
  5. GABAPENTIN [Concomitant]
     Indication: MUSCULAR WEAKNESS
     Route: 048
  6. GABAPENTIN [Concomitant]
     Indication: SENSORY DISTURBANCE
     Route: 048
  7. HYDROCHLOROTHIAZIDE [Concomitant]
     Indication: HYPERTENSION
     Route: 048
  8. VITAMIN D [Concomitant]
     Indication: PRODUCT USED FOR UNKNOWN INDICATION
  9. FAMOTIDINE [Concomitant]
     Indication: PRODUCT USED FOR UNKNOWN INDICATION

REACTIONS (8)
  - BACK PAIN [None]
  - CONTUSION [None]
  - FALL [None]
  - HYPERTENSION [None]
  - HYPOAESTHESIA [None]
  - MUSCLE INJURY [None]
  - MUSCULAR WEAKNESS [None]
  - SENSORY DISTURBANCE [None]
